FAERS Safety Report 4660011-8 (Version None)
Quarter: 2005Q2

REPORT INFORMATION
  Report Type: 
  Country: None (occurrence: None)
  Receive Date: 20050510
  Receipt Date: 20041116
  Transmission Date: 20051028
  Serious: Yes (Other)
  Sender: FDA-Public Use
  Company Number: 2005015695

PATIENT
  Age: 78 Year
  Sex: Female
  Weight: 67.1324 kg

DRUGS (4)
  1. DETROL LA [Suspect]
     Indication: HYPERTONIC BLADDER
     Dosage: 4 MG ( 4 MG, 1 IN 1 D), ORAL
     Route: 048
     Dates: start: 20020101, end: 20040101
  2. LABETALOL HCL [Concomitant]
  3. VALSARTAN [Concomitant]
  4. WARFARIN SOIDUM (WARFARIN SODIUM) [Concomitant]

REACTIONS (4)
  - BLADDER PROLAPSE [None]
  - DRUG EFFECT DECREASED [None]
  - DRY MOUTH [None]
  - HEADACHE [None]
